FAERS Safety Report 7807918-8 (Version None)
Quarter: 2011Q4

REPORT INFORMATION
  Report Type: 
  Country: None (occurrence: None)
  Receive Date: 20111011
  Receipt Date: 20111011
  Transmission Date: 20120403
  Serious: Yes (Other)
  Sender: FDA-Public Use
  Company Number: None

PATIENT
  Sex: Male
  Weight: 49.441 kg

DRUGS (2)
  1. AMOXICILLIN [Suspect]
     Indication: SINUSITIS
     Dosage: 500 MG
     Route: 048
     Dates: start: 20111003, end: 20111004
  2. AMOXICILLIN [Suspect]
     Indication: EAR INFECTION
     Dosage: 500 MG
     Route: 048
     Dates: start: 20111003, end: 20111004

REACTIONS (1)
  - HEART RATE INCREASED [None]
